FAERS Safety Report 7795376-1 (Version None)
Quarter: 2011Q4

REPORT INFORMATION
  Report Type: 
  Country: None (occurrence: None)
  Receive Date: 20111004
  Receipt Date: 20110927
  Transmission Date: 20120403
  Serious: Yes (Hospitalization)
  Sender: FDA-Public Use
  Company Number: US-UCBSA-042279

PATIENT
  Sex: Female
  Weight: 46 kg

DRUGS (1)
  1. LACOSAMIDE [Suspect]
     Indication: CONVULSION
     Route: 048

REACTIONS (3)
  - VOMITING [None]
  - CONVULSION [None]
  - HEADACHE [None]
